FAERS Safety Report 15624541 (Version 2)
Quarter: 2019Q1

REPORT INFORMATION
  Report Type: Report from Study
  Country: US (occurrence: US)
  Receive Date: 20181116
  Receipt Date: 20190114
  Transmission Date: 20190417
  Serious: No
  Sender: FDA-Public Use
  Company Number: US-B.I. PHARMACEUTICALS,INC./RIDGEFIELD-2018-BI-054909

PATIENT
  Age: 82 Year
  Sex: Male

DRUGS (4)
  1. GILOTRIF [Suspect]
     Active Substance: AFATINIB
     Indication: LUNG NEOPLASM MALIGNANT
     Dosage: FORM STRENGTH: 30 MG; FORMULATION: TABLET?ACTION(S) TAKEN: DOSE NOT CHANGED
     Route: 048
     Dates: start: 20181020
  2. GILOTRIF [Suspect]
     Active Substance: AFATINIB
     Route: 048
     Dates: start: 20181213
  3. FLOMAX [Concomitant]
     Active Substance: TAMSULOSIN HYDROCHLORIDE
     Indication: POLLAKIURIA
     Dosage: FORM STRENGTH: UNKNOWN MG; FORMULATION: TABLET
     Route: 048
     Dates: end: 20181102
  4. LEVOTHYROXINE. [Concomitant]
     Active Substance: LEVOTHYROXINE
     Indication: HYPOTHYROIDISM
     Dosage: FORM STRENGTH: 50 MG; FORMULATION: TABLET
     Route: 048

REACTIONS (7)
  - Diarrhoea [Recovered/Resolved]
  - Pruritus [Not Recovered/Not Resolved]
  - Rash [Not Recovered/Not Resolved]
  - Rash [Unknown]
  - Onychoclasis [Unknown]
  - Memory impairment [Unknown]
  - Pruritus [Unknown]

NARRATIVE: CASE EVENT DATE: 20181022
